FAERS Safety Report 7522142-4 (Version None)
Quarter: 2011Q2

REPORT INFORMATION
  Report Type: 
  Country: None (occurrence: None)
  Receive Date: 20110603
  Receipt Date: 20110531
  Transmission Date: 20111010
  Serious: Yes (Other)
  Sender: FDA-Public Use
  Company Number: FR-PFIZER INC-2011116870

PATIENT
  Sex: Female

DRUGS (5)
  1. ETANERCEPT [Concomitant]
     Dosage: UNK
  2. TRAMADOL HCL [Concomitant]
     Dosage: UNK
  3. CELEBREX [Suspect]
     Dosage: 200 MG, 2X/DAY
  4. CELEBREX [Suspect]
     Dosage: 200 MG, 1X/DAY
  5. AMLODIPINE [Concomitant]
     Dosage: UNK

REACTIONS (1)
  - METABOLIC SYNDROME [None]
